FAERS Safety Report 21627336 (Version 1)
Quarter: 2022Q4

REPORT INFORMATION
  Report Type: Spontaneous
  Country: US (occurrence: None)
  Receive Date: 20221122
  Receipt Date: 20221122
  Transmission Date: 20230112
  Serious: No
  Sender: FDA-Public Use
  Company Number: US-ROCHE-3096732

PATIENT
  Sex: Male

DRUGS (3)
  1. LUCENTIS [Suspect]
     Active Substance: RANIBIZUMAB
     Indication: Neovascular age-related macular degeneration
     Dosage: YES
     Route: 050
     Dates: start: 2012
  2. AMPICILLIN [Concomitant]
     Active Substance: AMPICILLIN
     Dosage: TAKES 4 TIMES A DAY ;ONGOING: YES
  3. ANTIBIOTICS (UNK INGREDIENTS) [Concomitant]

REACTIONS (1)
  - Gastric infection [Not Recovered/Not Resolved]
